FAERS Safety Report 9370039 (Version 4)
Quarter: 2013Q3

REPORT INFORMATION
  Report Type: Report from Study
  Country: US (occurrence: US)
  Receive Date: 20130626
  Receipt Date: 20130812
  Transmission Date: 20140515
  Serious: Yes (Hospitalization)
  Sender: FDA-Public Use
  Company Number: US-ACTELION-A-NJ2013-85033

PATIENT
  Age: 55 Year
  Sex: Female

DRUGS (3)
  1. VENTAVIS [Suspect]
     Indication: PULMONARY ARTERIAL HYPERTENSION
     Dosage: 2.5 MCG, 6-9/DAY
     Route: 055
     Dates: start: 20130521
  2. MORPHINE [Suspect]
     Dosage: UNK
  3. ADCIRCA [Concomitant]

REACTIONS (4)
  - Malaise [Unknown]
  - Drug dose omission [Unknown]
  - Accidental overdose [Recovering/Resolving]
  - Confusional state [Unknown]
